FAERS Safety Report 10956499 (Version 1)
Quarter: 2015Q1

REPORT INFORMATION
  Report Type: Spontaneous
  Country: US (occurrence: None)
  Receive Date: 20150325
  Receipt Date: 20150325
  Transmission Date: 20150721
  Serious: Yes (Life-Threatening, Hospitalization)
  Sender: FDA-Public Use
  Company Number: None

PATIENT
  Age: 22 Year
  Sex: Female
  Weight: 51.26 kg

DRUGS (4)
  1. PROBIOTIC PEARLS [Concomitant]
  2. VITAFUSION MULTIVITES ADULT GUMMY MULTIVITAMINS [Concomitant]
  3. SPRING VALLEY VITAMIN D3 [Concomitant]
  4. CLARAVIS [Suspect]
     Active Substance: ISOTRETINOIN
     Indication: ACNE
     Dosage: ONE CAPSULE DAILY, WITH LAST DAILY MEAL
     Route: 048
     Dates: start: 20150115, end: 20150117

REACTIONS (10)
  - Head discomfort [None]
  - Chills [None]
  - Heart rate increased [None]
  - Syncope [None]
  - White blood cell count increased [None]
  - Headache [None]
  - Hyperacusis [None]
  - Hearing impaired [None]
  - Pyrexia [None]
  - Nausea [None]

NARRATIVE: CASE EVENT DATE: 20150117
